FAERS Safety Report 23436147 (Version 3)
Quarter: 2024Q2

REPORT INFORMATION
  Report Type: Report from Study
  Country: JP (occurrence: JP)
  Receive Date: 20240124
  Receipt Date: 20240627
  Transmission Date: 20240716
  Serious: Yes (Other)
  Sender: FDA-Public Use
  Company Number: JP-TAKEDA-2022TJP055242

PATIENT
  Age: 16 Year
  Sex: Female
  Weight: 45 kg

DRUGS (13)
  1. ICATIBANT [Suspect]
     Active Substance: ICATIBANT ACETATE
     Indication: Hereditary angioedema
     Dosage: 30 MILLIGRAM, 3/WEEK
     Route: 058
     Dates: start: 202204
  2. ICATIBANT [Suspect]
     Active Substance: ICATIBANT ACETATE
     Indication: Hereditary angioedema
     Dosage: 30 MILLIGRAM, 3/WEEK
     Route: 058
     Dates: start: 202204
  3. ICATIBANT [Suspect]
     Active Substance: ICATIBANT ACETATE
     Dosage: 30 MILLIGRAM, 1/WEEK
     Route: 058
  4. ICATIBANT [Suspect]
     Active Substance: ICATIBANT ACETATE
     Dosage: 30 MILLIGRAM, 1/WEEK
     Route: 058
  5. ICATIBANT [Suspect]
     Active Substance: ICATIBANT ACETATE
     Dosage: 30 MILLIGRAM
     Route: 058
  6. ICATIBANT [Suspect]
     Active Substance: ICATIBANT ACETATE
     Dosage: 30 MILLIGRAM
     Route: 058
  7. TAKHZYRO [Suspect]
     Active Substance: LANADELUMAB-FLYO
     Indication: Hereditary angioedema
     Dosage: 300 MILLIGRAM
     Route: 065
     Dates: start: 202404
  8. GABAPENTIN ENACARBIL [Suspect]
     Active Substance: GABAPENTIN ENACARBIL
     Indication: Arthralgia
     Dosage: UNK
     Route: 048
     Dates: end: 20220706
  9. GABAPENTIN ENACARBIL [Suspect]
     Active Substance: GABAPENTIN ENACARBIL
     Indication: Limb discomfort
  10. BEROTRALSTAT HYDROCHLORIDE [Suspect]
     Active Substance: BEROTRALSTAT HYDROCHLORIDE
     Indication: Product used for unknown indication
     Dosage: UNK
     Route: 065
     Dates: start: 20230105
  11. MIROGABALIN BESYLATE [Concomitant]
     Active Substance: MIROGABALIN BESYLATE
     Indication: Arthralgia
     Dosage: UNK UNK, PRN
     Route: 065
     Dates: start: 20220706
  12. MIROGABALIN BESYLATE [Concomitant]
     Active Substance: MIROGABALIN BESYLATE
     Indication: Limb discomfort
  13. HERBALS [Concomitant]
     Active Substance: HERBALS
     Dosage: UNK
     Route: 048

REACTIONS (54)
  - Brain oedema [Unknown]
  - Visual field defect [Unknown]
  - Pharyngeal swelling [Unknown]
  - Abdominal pain [Unknown]
  - Hereditary angioedema [Unknown]
  - Dysphoria [Unknown]
  - Pallor [Unknown]
  - Amenorrhoea [Recovered/Resolved]
  - Physical deconditioning [Unknown]
  - Swelling face [Unknown]
  - Decreased appetite [Unknown]
  - Weight decreased [Unknown]
  - Arthralgia [Unknown]
  - Somnolence [Recovered/Resolved]
  - Pain in extremity [Unknown]
  - Limb discomfort [Unknown]
  - Diarrhoea [Not Recovered/Not Resolved]
  - Chest discomfort [Not Recovered/Not Resolved]
  - Stress [Unknown]
  - Facial pain [Unknown]
  - Face oedema [Not Recovered/Not Resolved]
  - Physical deconditioning [Unknown]
  - Physical deconditioning [Unknown]
  - Face oedema [Unknown]
  - Hereditary angioedema [Unknown]
  - Cough [Recovering/Resolving]
  - Dyspnoea [Recovering/Resolving]
  - Dysmenorrhoea [Unknown]
  - Dyspnoea [Unknown]
  - Head discomfort [Unknown]
  - Tremor [Unknown]
  - Musculoskeletal stiffness [Unknown]
  - Coronavirus infection [Unknown]
  - Cystitis [Unknown]
  - Heart rate decreased [Recovering/Resolving]
  - Hypopnoea [Recovering/Resolving]
  - Physical deconditioning [Unknown]
  - Neuralgia [Unknown]
  - Swelling face [Unknown]
  - Nausea [Unknown]
  - Injection site swelling [Recovered/Resolved]
  - Injection site warmth [Recovered/Resolved]
  - Injection site pain [Unknown]
  - Headache [Unknown]
  - Injection site pain [Unknown]
  - Injection site vesicles [Unknown]
  - Injection site pain [Unknown]
  - Oxygen saturation decreased [Unknown]
  - Heart rate decreased [Unknown]
  - Product use issue [Unknown]
  - Off label use [Unknown]
  - Product use issue [Unknown]
  - Intentional underdose [Unknown]
  - Product administration interrupted [Unknown]

NARRATIVE: CASE EVENT DATE: 20220101
